FAERS Safety Report 14380694 (Version 3)
Quarter: 2019Q1

REPORT INFORMATION
  Report Type: Spontaneous
  Country: US (occurrence: US)
  Receive Date: 20180112
  Receipt Date: 20190107
  Transmission Date: 20190417
  Serious: No
  Sender: FDA-Public Use
  Company Number: US-MALLINCKRODT-T201703845

PATIENT
  Sex: Female

DRUGS (2)
  1. HYDROMORPHONE [Suspect]
     Active Substance: HYDROMORPHONE
     Dosage: 2 MG, EVERY 4 HOURS AS NEEDED
     Route: 048
     Dates: start: 201706
  2. HYDROMORPHONE [Suspect]
     Active Substance: HYDROMORPHONE
     Indication: PAIN
     Dosage: 4 MG
     Route: 048
     Dates: start: 201706

REACTIONS (3)
  - Headache [Unknown]
  - Movement disorder [Unknown]
  - Drug ineffective [Unknown]
